FAERS Safety Report 18146700 (Version 1)
Quarter: 2020Q3

REPORT INFORMATION
  Report Type: Spontaneous
  Country: DE (occurrence: DE)
  Receive Date: 20200813
  Receipt Date: 20200813
  Transmission Date: 20201103
  Serious: Yes (Life-Threatening, Hospitalization)
  Sender: FDA-Public Use
  Company Number: DE-PFIZER INC-2020312554

PATIENT
  Age: 46 Year
  Sex: Male
  Weight: 63 kg

DRUGS (2)
  1. PREGABALIN. [Suspect]
     Active Substance: PREGABALIN
     Dosage: 100 MG, 1?0?1?0
  2. RAMIPRIL. [Concomitant]
     Active Substance: RAMIPRIL
     Dosage: 5 MG, 1?0?1?0

REACTIONS (4)
  - Seizure [Unknown]
  - Hyponatraemia [Unknown]
  - Vomiting [Unknown]
  - Tachycardia [Unknown]
